FAERS Safety Report 8355077-8 (Version None)
Quarter: 2012Q2

REPORT INFORMATION
  Report Type: 
  Country: None (occurrence: None)
  Receive Date: 20120511
  Receipt Date: 20120430
  Transmission Date: 20120825
  Serious: Yes (Hospitalization, Other)
  Sender: FDA-Public Use
  Company Number: FR-ELI_LILLY_AND_COMPANY-FR201204009944

PATIENT
  Age: 69 Year
  Sex: Male

DRUGS (1)
  1. ALIMTA [Suspect]
     Indication: NEOPLASM MALIGNANT
     Dosage: 897 MG, UNK
     Route: 042
     Dates: start: 20110506, end: 20111209

REACTIONS (3)
  - NEOPLASM PROGRESSION [None]
  - PNEUMONIA [None]
  - PULMONARY FIBROSIS [None]
